FAERS Safety Report 23365495 (Version 1)
Quarter: 2024Q1

REPORT INFORMATION
  Report Type: Spontaneous
  Country: AU (occurrence: AU)
  Receive Date: 20240104
  Receipt Date: 20240104
  Transmission Date: 20240410
  Serious: Yes (Hospitalization, Other)
  Sender: FDA-Public Use
  Company Number: AU-BAXTER-2024BAX009801

PATIENT
  Age: 30 Year
  Sex: Female
  Weight: 68 kg

DRUGS (2)
  1. CYCLOPHOSPHAMIDE [Suspect]
     Active Substance: CYCLOPHOSPHAMIDE
     Indication: Lymphodepletion
     Dosage: 1000 MG/M2/DAY
     Route: 042
     Dates: start: 20231017, end: 20231023
  2. FLUDARABINE [Suspect]
     Active Substance: FLUDARABINE PHOSPHATE
     Indication: Lymphodepletion
     Dosage: 30 MG/M2/DAY, (C1D-6)
     Route: 042
     Dates: start: 20231017, end: 20231023

REACTIONS (7)
  - Cytokine release syndrome [Unknown]
  - Pneumonia fungal [Not Recovered/Not Resolved]
  - Thrombocytopenia [Unknown]
  - Neutropenia [Unknown]
  - Pyrexia [Unknown]
  - Hypotension [Unknown]
  - Sepsis [Unknown]

NARRATIVE: CASE EVENT DATE: 20231017
